FAERS Safety Report 4847932-8 (Version None)
Quarter: 2005Q4

REPORT INFORMATION
  Report Type: 
  Country: None (occurrence: None)
  Receive Date: 20051207
  Receipt Date: 20051207
  Transmission Date: 20060501
  Serious: Yes (Hospitalization)
  Sender: FDA-Public Use
  Company Number: None

PATIENT
  Age: 61 Year
  Sex: Male
  Weight: 86 kg

DRUGS (27)
  1. GEODON [Suspect]
     Indication: MAJOR DEPRESSION
     Dosage: 40MG  Q BEDTIME  PO
     Route: 048
     Dates: start: 20050206, end: 20050213
  2. AMIODARONE HCL [Concomitant]
  3. LISINOPRIL [Concomitant]
  4. ALBUTEROL [Concomitant]
  5. IPRATROPIUM BROMIDE [Concomitant]
  6. MULTI-VITAMIN [Concomitant]
  7. ASPIRIN [Concomitant]
  8. ATORVASTATIN CALCIUM [Concomitant]
  9. AMLODIPINE [Concomitant]
  10. BISACODYL [Concomitant]
  11. LACTULOSE [Concomitant]
  12. CEFTRIAXONE [Concomitant]
  13. AZITHROMYCIN [Concomitant]
  14. PANTOPRAZOLE [Concomitant]
  15. ZOSYN [Concomitant]
  16. VANCOMYCIN [Concomitant]
  17. MAGNESIUM SULFATE [Concomitant]
  18. POTASSIUM CHLORIDE [Concomitant]
  19. LEXAPRO [Concomitant]
  20. METFORMIN [Concomitant]
  21. REGULAR INSULIN [Concomitant]
  22. GLYBURIDE [Concomitant]
  23. DOXAZOSIN [Concomitant]
  24. DIAZEPAM [Concomitant]
  25. LEVALBUTEROL [Concomitant]
  26. ACETAMINOPHEN [Concomitant]
  27. ENOXAPARIN [Concomitant]

REACTIONS (5)
  - ACUTE RESPIRATORY FAILURE [None]
  - BRADYCARDIA [None]
  - ELECTROCARDIOGRAM QT PROLONGED [None]
  - NOSOCOMIAL INFECTION [None]
  - PNEUMONIA [None]
